FAERS Safety Report 15439513 (Version 1)
Quarter: 2018Q3

REPORT INFORMATION
  Report Type: Spontaneous
  Country: US (occurrence: US)
  Receive Date: 20180928
  Receipt Date: 20180928
  Transmission Date: 20181010
  Serious: No
  Sender: FDA-Public Use
  Company Number: US-EISAI MEDICAL RESEARCH-EC-2018-045444

PATIENT
  Age: 49 Year
  Sex: Male

DRUGS (1)
  1. BELVIQ [Suspect]
     Active Substance: LORCASERIN HYDROCHLORIDE
     Indication: WEIGHT DECREASED
     Route: 048
     Dates: start: 20180918, end: 20180920

REACTIONS (5)
  - Chills [Recovered/Resolved]
  - Cough [Recovered/Resolved]
  - Hyperhidrosis [Recovered/Resolved]
  - Dyspepsia [Recovered/Resolved]
  - Feeling abnormal [Recovered/Resolved]

NARRATIVE: CASE EVENT DATE: 20180919
